FAERS Safety Report 17668277 (Version 2)
Quarter: 2020Q2

REPORT INFORMATION
  Report Type: Spontaneous
  Country: FR (occurrence: FR)
  Receive Date: 20200415
  Receipt Date: 20200428
  Transmission Date: 20200713
  Serious: Yes (Death, Other)
  Sender: FDA-Public Use
  Company Number: FR-VISTAPHARM, INC.-VER202004-000768

PATIENT
  Age: 9 Year
  Sex: Female
  Weight: 30 kg

DRUGS (1)
  1. HYDROCODONE AND ACETAMINOPHEN [Suspect]
     Active Substance: ACETAMINOPHEN\HYDROCODONE
     Indication: PAIN
     Dosage: 500 MG ON FOUR THERAPEUTIC DOSES OF ACETAMINOPHEN AT 4-H INTERVALS

REACTIONS (7)
  - Renal tubular necrosis [Fatal]
  - Oedema [Unknown]
  - Drug-induced liver injury [Unknown]
  - Encephalopathy [Fatal]
  - Hepatorenal syndrome [Unknown]
  - Acute hepatic failure [Fatal]
  - Toxicity to various agents [Fatal]
